FAERS Safety Report 8516661-1 (Version None)
Quarter: 2012Q3

REPORT INFORMATION
  Report Type: 
  Country: None (occurrence: None)
  Receive Date: 20120706
  Receipt Date: 20120628
  Transmission Date: 20120928
  Serious: Yes (Hospitalization)
  Sender: FDA-Public Use
  Company Number: DAV-AE-HCTZ-12-06

PATIENT
  Age: 59 Year
  Sex: Male

DRUGS (2)
  1. SILDENAFIL [Suspect]
     Dosage: 50 MG, TABLET, UNKNOWN
  2. HYDROCHLOROTHIAZIDE [Suspect]
     Indication: HYPERTENSION
     Dosage: NOT REPORTED, UNKNOWN

REACTIONS (2)
  - SPINAL CORD INFARCTION [None]
  - HYPOTENSION [None]
